FAERS Safety Report 24430882 (Version 1)
Quarter: 2024Q4

REPORT INFORMATION
  Report Type: Spontaneous
  Country: ES (occurrence: ES)
  Receive Date: 20241014
  Receipt Date: 20241014
  Transmission Date: 20250114
  Serious: Yes (Life-Threatening, Hospitalization, Other)
  Sender: CIPLA
  Company Number: ES-EMA-DD-20240927-7482663-102856

PATIENT

DRUGS (2)
  1. VALGANCICLOVIR [Interacting]
     Active Substance: VALGANCICLOVIR
     Indication: Product used for unknown indication
     Dosage: UNK
     Route: 065
  2. MYCOPHENOLATE MOFETIL [Interacting]
     Active Substance: MYCOPHENOLATE MOFETIL
     Indication: Product used for unknown indication
     Dosage: 120 MILLIGRAM, BID
     Route: 065

REACTIONS (3)
  - Toxicity to various agents [Recovered/Resolved]
  - Agranulocytosis [Recovered/Resolved]
  - Drug interaction [Recovered/Resolved]
